FAERS Safety Report 9884088 (Version 1)
Quarter: 2014Q1

REPORT INFORMATION
  Report Type: Spontaneous
  Country: US (occurrence: None)
  Receive Date: 20140207
  Receipt Date: 20140207
  Transmission Date: 20141002
  Serious: Yes (Disabling)
  Sender: FDA-Public Use
  Company Number: None

PATIENT
  Age: 59 Year
  Sex: Male
  Weight: 54.43 kg

DRUGS (4)
  1. AMOXICILLIN [Suspect]
     Indication: DYSPNOEA
     Dosage: 1 PILL  THREE TIMES DAILY  TAKEN BY MOUTH
     Route: 048
     Dates: start: 20131105, end: 20131112
  2. AMOXICILLIN [Suspect]
     Indication: PALATAL DISORDER
     Dosage: 1 PILL  THREE TIMES DAILY  TAKEN BY MOUTH
     Route: 048
     Dates: start: 20131105, end: 20131112
  3. PREDNISONE [Suspect]
     Indication: DYSPNOEA
     Dosage: 1 PILL  THREE TIMES DAILY  TAKEN BY MOUTH
     Route: 048
     Dates: start: 20131105, end: 20131112
  4. PREDNISONE [Suspect]
     Indication: PALATAL DISORDER
     Dosage: 1 PILL  THREE TIMES DAILY  TAKEN BY MOUTH
     Route: 048
     Dates: start: 20131105, end: 20131112

REACTIONS (3)
  - Hypoaesthesia [None]
  - Neuropathy peripheral [None]
  - Dysuria [None]
